FAERS Safety Report 24641108 (Version 1)
Quarter: 2024Q4

REPORT INFORMATION
  Report Type: Spontaneous
  Country: US (occurrence: US)
  Receive Date: 20241120
  Receipt Date: 20241120
  Transmission Date: 20250115
  Serious: Yes (Other)
  Sender: CHIESI
  Company Number: US-CHIESI-2024CHF07393

PATIENT
  Age: 71 Year
  Sex: Male

DRUGS (12)
  1. TOBRAMYCIN [Suspect]
     Active Substance: TOBRAMYCIN\TOBRAMYCIN SULFATE
     Indication: Device related infection
     Dosage: 2.4 GRAM
     Route: 065
  2. TOBRAMYCIN [Suspect]
     Active Substance: TOBRAMYCIN\TOBRAMYCIN SULFATE
     Indication: Off label use
     Dosage: 3.6 GRAM
     Route: 065
  3. CEFAZOLIN [Suspect]
     Active Substance: CEFAZOLIN
     Indication: Device related infection
     Dosage: 2 GRAM, Q8H
     Route: 042
  4. NAFCILLIN [Suspect]
     Active Substance: NAFCILLIN SODIUM
     Indication: Device related infection
     Dosage: 2 GRAM, Q4H
     Route: 065
  5. VANCOMYCIN [Suspect]
     Active Substance: VANCOMYCIN
     Indication: Device related infection
     Dosage: 2 GRAM
     Route: 065
  6. VANCOMYCIN [Suspect]
     Active Substance: VANCOMYCIN
     Dosage: 1 GRAM
     Route: 065
  7. VANCOMYCIN [Suspect]
     Active Substance: VANCOMYCIN
     Dosage: 3 GRAM
     Route: 065
  8. VANCOMYCIN [Suspect]
     Active Substance: VANCOMYCIN
     Dosage: 1 GRAM
     Route: 065
  9. GENTAMICIN [Suspect]
     Active Substance: GENTAMICIN
     Indication: Device related infection
     Dosage: 240 MILLIGRAM
     Route: 065
  10. GENTAMICIN [Suspect]
     Active Substance: GENTAMICIN
     Dosage: 240 MILLIGRAM
     Route: 065
  11. VANCOMYCIN [Suspect]
     Active Substance: VANCOMYCIN
     Indication: Clostridium difficile infection
     Dosage: 125 MILLIGRAM, Q12H
     Route: 048
  12. CEFAZOLIN [Suspect]
     Active Substance: CEFAZOLIN
     Indication: Clostridium difficile infection
     Dosage: 2 GRAM, Q12H
     Route: 042

REACTIONS (3)
  - Acute kidney injury [Recovered/Resolved]
  - Drug level increased [Recovering/Resolving]
  - Off label use [Unknown]
